FAERS Safety Report 8336652-3 (Version None)
Quarter: 2012Q2

REPORT INFORMATION
  Report Type: 
  Country: None (occurrence: None)
  Receive Date: 20120504
  Receipt Date: 20120427
  Transmission Date: 20120825
  Serious: Yes (Hospitalization, Other)
  Sender: FDA-Public Use
  Company Number: US-BAYER-2011-085304

PATIENT
  Age: 23 Year
  Sex: Female
  Weight: 47.619 kg

DRUGS (3)
  1. YAZ [Suspect]
     Dosage: UNK
     Route: 048
     Dates: start: 20070801, end: 20090201
  2. IMPLANON [Concomitant]
     Dosage: 68 MG, UNK
     Dates: start: 20090825, end: 20090825
  3. PEPCID [Concomitant]
     Dosage: UNK
     Dates: start: 20100501

REACTIONS (8)
  - INJURY [None]
  - ANXIETY [None]
  - CHOLECYSTECTOMY [None]
  - GENERAL PHYSICAL HEALTH DETERIORATION [None]
  - EMOTIONAL DISTRESS [None]
  - PAIN [None]
  - ANHEDONIA [None]
  - CHOLECYSTITIS CHRONIC [None]
